FAERS Safety Report 16295768 (Version 1)
Quarter: 2019Q2

REPORT INFORMATION
  Report Type: Spontaneous
  Country: US (occurrence: US)
  Receive Date: 20190404
  Receipt Date: 20190404
  Transmission Date: 20190711
  Serious: No
  Sender: FDA-Public Use
  Company Number: None

PATIENT
  Age: 76 Year
  Sex: Female
  Weight: 63.5 kg

DRUGS (6)
  1. PANTOPRAZOLE 40MG [Suspect]
     Active Substance: PANTOPRAZOLE SODIUM
     Indication: GASTROOESOPHAGEAL REFLUX DISEASE
     Dosage: ?          QUANTITY:1 DF DOSAGE FORM;?
     Route: 048
     Dates: end: 20190206
  2. FLAX SEED [Concomitant]
     Active Substance: FLAX SEED
  3. VITAMIN C [Concomitant]
     Active Substance: ASCORBIC ACID
  4. PROBIOTIC [Concomitant]
     Active Substance: PROBIOTICS NOS
  5. MAGNESIUM [Concomitant]
     Active Substance: MAGNESIUM
  6. BIOTIN [Concomitant]
     Active Substance: BIOTIN

REACTIONS (7)
  - Asthenia [None]
  - Dizziness [None]
  - Palpitations [None]
  - Fatigue [None]
  - Throat tightness [None]
  - Presyncope [None]
  - Decreased appetite [None]

NARRATIVE: CASE EVENT DATE: 20190129
